FAERS Safety Report 4781445-7 (Version None)
Quarter: 2005Q3

REPORT INFORMATION
  Report Type: 
  Country: None (occurrence: None)
  Receive Date: 20050928
  Receipt Date: 20050916
  Transmission Date: 20060218
  Serious: Yes (Other)
  Sender: FDA-Public Use
  Company Number: GB-BRISTOL-MYERS SQUIBB COMPANY-13116660

PATIENT
  Age: 28 Year
  Sex: Female

DRUGS (5)
  1. VIDEX [Suspect]
     Dosage: STOPPED IN JUL-2004 AND RESTARTED ON UNKNOWN DATE.
     Route: 048
  2. LAMIVUDINE [Concomitant]
     Dates: end: 20040701
  3. NEVIRAPINE [Concomitant]
     Dates: end: 20040701
  4. KALETRA [Concomitant]
  5. ABACAVIR [Concomitant]

REACTIONS (8)
  - ABORTION SPONTANEOUS [None]
  - CHEST PAIN [None]
  - DIARRHOEA [None]
  - HAEMOGLOBIN DECREASED [None]
  - JAUNDICE [None]
  - PLATELET COUNT DECREASED [None]
  - PREGNANCY [None]
  - THROMBOTIC THROMBOCYTOPENIC PURPURA [None]
